FAERS Safety Report 7328618-7 (Version None)
Quarter: 2011Q1

REPORT INFORMATION
  Report Type: 
  Country: None (occurrence: None)
  Receive Date: 20110303
  Receipt Date: 20110222
  Transmission Date: 20110831
  Serious: Yes (Hospitalization, Other)
  Sender: FDA-Public Use
  Company Number: BR-ROCHE-593985

PATIENT
  Sex: Female
  Weight: 43 kg

DRUGS (3)
  1. RIVOTRIL [Suspect]
     Indication: DEPRESSION
     Dosage: OTHER INDICATION: PANIC DISORDER, MISSED ONE DAY DOSE
     Route: 048
     Dates: start: 19900101
  2. VALIUM [Suspect]
     Indication: DEPRESSION
     Route: 065
  3. SUSTRATE [Concomitant]
     Dosage: OTHER INDICATION: ARTERIAL BLOOD PRESSURE
     Route: 048

REACTIONS (13)
  - NEOPLASM [None]
  - DEPRESSION [None]
  - INSOMNIA [None]
  - SUICIDAL IDEATION [None]
  - GALLBLADDER CANCER [None]
  - ISCHAEMIA [None]
  - HERNIA [None]
  - DRUG DEPENDENCE [None]
  - THERAPEUTIC RESPONSE DECREASED [None]
  - HYPERSENSITIVITY [None]
  - INFARCTION [None]
  - ABDOMINAL PAIN [None]
  - CYST [None]
